FAERS Safety Report 21785784 (Version 2)
Quarter: 2023Q1

REPORT INFORMATION
  Report Type: Spontaneous
  Country: US (occurrence: US)
  Receive Date: 20221227
  Receipt Date: 20230122
  Transmission Date: 20230418
  Serious: Yes (Other)
  Sender: FDA-Public Use
  Company Number: US-BoehringerIngelheim-2022-BI-209987

PATIENT
  Sex: Male

DRUGS (1)
  1. JARDIANCE [Suspect]
     Active Substance: EMPAGLIFLOZIN
     Indication: Product used for unknown indication

REACTIONS (6)
  - Cerebrovascular accident [Unknown]
  - Myocardial infarction [Unknown]
  - Cardiac failure congestive [Unknown]
  - Neoplasm malignant [Unknown]
  - Visual impairment [Unknown]
  - Amnesia [Unknown]
